FAERS Safety Report 9253765 (Version 5)
Quarter: 2013Q3

REPORT INFORMATION
  Report Type: Spontaneous
  Country: US (occurrence: US)
  Receive Date: 20130425
  Receipt Date: 20130717
  Transmission Date: 20140515
  Serious: No
  Sender: FDA-Public Use
  Company Number: US-PFIZER INC-2013125323

PATIENT
  Age: 63 Year
  Sex: Female
  Weight: 63.5 kg

DRUGS (1)
  1. PREMARIN [Suspect]
     Indication: ATROPHIC VULVOVAGINITIS
     Dosage: 0.5 G, 2-3 TIMES /WEEK
     Route: 067
     Dates: start: 2012

REACTIONS (4)
  - Mean platelet volume decreased [Unknown]
  - Carbon dioxide increased [Unknown]
  - Product contamination [Unknown]
  - Vaginal infection [Unknown]
